FAERS Safety Report 11928410 (Version 1)
Quarter: 2016Q1

REPORT INFORMATION
  Report Type: Spontaneous
  Country: US (occurrence: US)
  Receive Date: 20160119
  Receipt Date: 20160119
  Transmission Date: 20160526
  Serious: Yes (Death, Hospitalization)
  Sender: FDA-Public Use
  Company Number: US-TAIHO ONCOLOGY INC-EU-2016-00043

PATIENT
  Age: 52 Year
  Sex: Male
  Weight: 116.68 kg

DRUGS (1)
  1. LONSURF [Suspect]
     Active Substance: TIPIRACIL HYDROCHLORIDE\TRIFLURIDINE
     Indication: COLON CANCER
     Dosage: CYCLE 1 - UNKNOWN DOSAGE
     Route: 048
     Dates: start: 20151210, end: 201512

REACTIONS (5)
  - Renal failure [Unknown]
  - Metastases to liver [Fatal]
  - Metastases to lung [Fatal]
  - Dehydration [Unknown]
  - Anaemia [Unknown]

NARRATIVE: CASE EVENT DATE: 20151222
